FAERS Safety Report 26146688 (Version 1)
Quarter: 2025Q4

REPORT INFORMATION
  Report Type: Spontaneous
  Country: EU (occurrence: EU)
  Receive Date: 20251211
  Receipt Date: 20251211
  Transmission Date: 20260117
  Serious: Yes (Other)
  Sender: PFIZER
  Company Number: None

PATIENT
  Age: 62 Year
  Sex: Female
  Weight: 88 kg

DRUGS (8)
  1. RITUXIMAB [Suspect]
     Active Substance: RITUXIMAB
     Indication: Thrombotic thrombocytopenic purpura
     Dosage: 375 MG, SINGLE
     Route: 042
     Dates: start: 20251022, end: 20251022
  2. RITUXIMAB [Suspect]
     Active Substance: RITUXIMAB
     Dosage: 375 MG, SINGLE
     Route: 042
     Dates: start: 20251023, end: 20251023
  3. RITUXIMAB [Suspect]
     Active Substance: RITUXIMAB
     Dosage: 750 MG, SINGLE
     Route: 042
     Dates: start: 20251029, end: 20251029
  4. RITUXIMAB [Suspect]
     Active Substance: RITUXIMAB
     Dosage: 700 MG, SINGLE
     Route: 042
     Dates: start: 20251104, end: 20251104
  5. CABLIVI [Suspect]
     Active Substance: CAPLACIZUMAB-YHDP
     Indication: Thrombotic thrombocytopenic purpura
     Dosage: 1 DF, SINGLE
     Route: 042
     Dates: start: 20251021, end: 20251026
  6. CAFFEINE\IBUPROFEN [Suspect]
     Active Substance: CAFFEINE\IBUPROFEN
     Indication: Back pain
     Dosage: 3 DF, SINGLE
     Route: 048
     Dates: start: 20251018, end: 20251018
  7. CAFFEINE\IBUPROFEN [Suspect]
     Active Substance: CAFFEINE\IBUPROFEN
     Dosage: 2 DF, SINGLE
     Route: 048
     Dates: start: 20251019, end: 20251019
  8. PREDNISONE [Suspect]
     Active Substance: PREDNISONE
     Indication: Thrombotic thrombocytopenic purpura
     Dosage: 90 MG, 1X/DAY
     Route: 048
     Dates: start: 20251022

REACTIONS (1)
  - Ischaemic stroke [Not Recovered/Not Resolved]

NARRATIVE: CASE EVENT DATE: 20251024
